FAERS Safety Report 6024486-4 (Version None)
Quarter: 2008Q4

REPORT INFORMATION
  Report Type: 
  Country: None (occurrence: None)
  Receive Date: 20081231
  Receipt Date: 20080909
  Transmission Date: 20090506
  Serious: No
  Sender: FDA-Public Use
  Company Number: US-BRISTOL-MYERS SQUIBB COMPANY-14329643

PATIENT
  Age: 69 Year
  Sex: Female
  Weight: 82 kg

DRUGS (8)
  1. ORENCIA [Suspect]
     Indication: RHEUMATOID ARTHRITIS
  2. METHOTREXATE [Concomitant]
  3. PREDNISONE [Concomitant]
  4. ULTRACET [Concomitant]
  5. NORFLEX [Concomitant]
  6. FOLIC ACID [Concomitant]
  7. DETROL [Concomitant]
  8. SYNTHROID [Concomitant]

REACTIONS (2)
  - APHTHOUS STOMATITIS [None]
  - SKIN ULCER [None]
